FAERS Safety Report 4775155-X (Version None)
Quarter: 2005Q3

REPORT INFORMATION
  Report Type: 
  Country: None (occurrence: None)
  Receive Date: 20050920
  Receipt Date: 20050912
  Transmission Date: 20060218
  Serious: Yes (Other)
  Sender: FDA-Public Use
  Company Number: 2005037504

PATIENT
  Sex: Female

DRUGS (2)
  1. CORTEF [Suspect]
     Indication: ILL-DEFINED DISORDER
     Dosage: 10 MG
  2. HYDROCORTISONE ACETATE [Suspect]
     Indication: ILL-DEFINED DISORDER

REACTIONS (5)
  - ADRENOCORTICAL INSUFFICIENCY CHRONIC [None]
  - DRUG EFFECT DECREASED [None]
  - MALABSORPTION [None]
  - PHARMACEUTICAL PRODUCT COMPLAINT [None]
  - POOR QUALITY DRUG ADMINISTERED [None]
